FAERS Safety Report 4478505-7 (Version None)
Quarter: 2004Q4

REPORT INFORMATION
  Report Type: 
  Country: None (occurrence: None)
  Receive Date: 20041018
  Receipt Date: 20041018
  Transmission Date: 20050328
  Serious: Yes (Hospitalization)
  Sender: FDA-Public Use
  Company Number: None

PATIENT
  Age: 46 Year
  Sex: Female
  Weight: 78.4723 kg

DRUGS (7)
  1. HERCEPTIN [Suspect]
     Indication: BREAST CANCER METASTATIC
     Dosage: 4MG/KG  IV  LOADING  304 MG
     Route: 042
     Dates: start: 20041011
  2. AREDIA [Concomitant]
  3. LETROZOLE [Concomitant]
  4. ZOLADEX [Concomitant]
  5. TYLENOL / BENADRYL [Concomitant]
  6. ZOFRAN ODT [Concomitant]
  7. FLU VACCINE [Concomitant]

REACTIONS (4)
  - DYSPNOEA [None]
  - PALPITATIONS [None]
  - SENSATION OF HEAVINESS [None]
  - SUPRAVENTRICULAR TACHYCARDIA [None]
